FAERS Safety Report 8785482 (Version 6)
Quarter: 2014Q2

REPORT INFORMATION
  Report Type: Spontaneous
  Country: US (occurrence: US)
  Receive Date: 20120914
  Receipt Date: 20140604
  Transmission Date: 20141212
  Serious: Yes (Hospitalization, Disabling, Other)
  Sender: FDA-Public Use
  Company Number: US-009507513-1203USA03354

PATIENT
  Sex: Female
  Weight: 77.11 kg

DRUGS (9)
  1. FOSAMAX [Suspect]
     Indication: OSTEOPOROSIS
     Dosage: 10 MG, QD
     Route: 048
     Dates: start: 20001108
  2. FOSAMAX [Suspect]
     Indication: OSTEOPENIA
     Dosage: 35 MG, QW
     Route: 048
     Dates: start: 20020109
  3. FOSAMAX [Suspect]
     Dosage: 70 MG, QW
     Route: 048
     Dates: start: 20021209, end: 20110820
  4. FOSAMAX PLUS D [Suspect]
     Indication: OSTEOPOROSIS
     Route: 048
     Dates: start: 20070426
  5. FOSAMAX [Suspect]
     Indication: OSTEOPOROSIS
     Dosage: 10 MG, UNK
     Route: 048
     Dates: start: 20010508
  6. FOSAMAX [Suspect]
     Indication: OSTEOPENIA
     Dosage: UNK
     Route: 048
     Dates: start: 200212, end: 201108
  7. PAXIL [Concomitant]
     Indication: DEPRESSION
     Dosage: 15 MG, QD
     Route: 048
  8. FORTEO [Concomitant]
     Indication: OSTEOPOROSIS
     Dosage: UNK
     Dates: start: 200711
  9. PAROXETINE [Concomitant]
     Indication: DEPRESSION

REACTIONS (42)
  - Femur fracture [Unknown]
  - Intramedullary rod insertion [Unknown]
  - Femur fracture [Recovered/Resolved]
  - Intramedullary rod insertion [Unknown]
  - Bone density decreased [Unknown]
  - Osteoporosis [Unknown]
  - Stress fracture [Unknown]
  - Femur fracture [Unknown]
  - Upper limb fracture [Unknown]
  - Spinal compression fracture [Unknown]
  - Upper limb fracture [Unknown]
  - Humerus fracture [Recovering/Resolving]
  - Hyperlipidaemia [Unknown]
  - Eczema eyelids [Unknown]
  - Upper limb fracture [Unknown]
  - Stress [Unknown]
  - Affective disorder [Unknown]
  - Limb asymmetry [Unknown]
  - Bursitis [Unknown]
  - Hypertension [Unknown]
  - Anxiety [Unknown]
  - Upper limb fracture [Unknown]
  - Tonsillar disorder [Unknown]
  - Adenoidal disorder [Unknown]
  - Musculoskeletal disorder [Unknown]
  - Fall [Unknown]
  - Fall [Unknown]
  - Chest pain [Unknown]
  - Haemoglobin decreased [Unknown]
  - Haematocrit decreased [Unknown]
  - Spinal compression fracture [Unknown]
  - Pulmonary fibrosis [Unknown]
  - Compression fracture [Unknown]
  - Vaginal infection [Unknown]
  - Skin papilloma [Unknown]
  - Blood calcium increased [Unknown]
  - Medical device removal [Unknown]
  - Iliotibial band syndrome [Unknown]
  - Medical device removal [Recovered/Resolved]
  - Spinal compression fracture [Unknown]
  - Pain in extremity [Unknown]
  - Arthralgia [Unknown]
